FAERS Safety Report 8961401 (Version 2)
Quarter: 2012Q4

REPORT INFORMATION
  Report Type: 
  Country: IT (occurrence: IT)
  Receive Date: 20121212
  Receipt Date: 20121214
  Transmission Date: 20130627
  Serious: Yes (Hospitalization, Other)
  Sender: FDA-Public Use
  Company Number: IT-ELI_LILLY_AND_COMPANY-IT201210004953

PATIENT
  Age: 73 Year
  Sex: Male

DRUGS (6)
  1. HUMALOG LISPRO [Suspect]
     Indication: TYPE 2 DIABETES MELLITUS
     Dosage: 15 IU, qd
     Route: 058
     Dates: start: 20110101, end: 20120801
  2. HUMALOG LISPRO [Suspect]
     Dosage: UNK
     Dates: start: 20120802, end: 20120803
  3. ARIXTRA [Concomitant]
     Indication: THROMBOSIS PROPHYLAXIS
     Route: 058
  4. KCL-RETARD [Concomitant]
     Indication: HYPOKALAEMIA
     Dosage: 1200 mg, UNK
     Route: 048
  5. NORVASC [Concomitant]
     Indication: HYPERTENSION
     Dosage: 5 mg, UNK
     Route: 048
  6. PANTORC [Concomitant]
     Indication: GASTROINTESTINAL ULCER
     Dosage: 20 mg, UNK
     Route: 048

REACTIONS (3)
  - Hypoglycaemic coma [Recovered/Resolved]
  - Hypoglycaemic seizure [Recovered/Resolved]
  - Hypoglycaemia [Recovered/Resolved]
